FAERS Safety Report 17598978 (Version 1)
Quarter: 2020Q1

REPORT INFORMATION
  Report Type: Spontaneous
  Country: US (occurrence: US)
  Receive Date: 20200330
  Receipt Date: 20200330
  Transmission Date: 20200409
  Serious: No
  Sender: FDA-Public Use
  Company Number: US-INDIVIOR US-INDV-123293-2020

PATIENT
  Age: 39 Year
  Sex: Male

DRUGS (2)
  1. SUBLOCADE [Suspect]
     Active Substance: BUPRENORPHINE
     Indication: DRUG DEPENDENCE
     Dosage: 100 MILLIGRAM, QMO (FOUR INJECTIONS)
     Route: 058
     Dates: start: 201908
  2. LIDOCAINE. [Suspect]
     Active Substance: LIDOCAINE
     Indication: PROPHYLAXIS
     Dosage: UNK
     Route: 065
     Dates: start: 201910

REACTIONS (4)
  - Injection site discharge [Unknown]
  - Injection site pain [Recovered/Resolved]
  - Therapeutic response decreased [Unknown]
  - Injection site ulcer [Unknown]

NARRATIVE: CASE EVENT DATE: 201910
